FAERS Safety Report 6648681-6 (Version None)
Quarter: 2010Q1

REPORT INFORMATION
  Report Type: 
  Country: None (occurrence: None)
  Receive Date: 20100324
  Receipt Date: 20081030
  Transmission Date: 20100710
  Serious: Yes (Hospitalization)
  Sender: FDA-Public Use
  Company Number: PT-SANOFI-AVENTIS-F01200800778

PATIENT
  Age: 54 Year
  Sex: Female
  Weight: 56 kg

DRUGS (4)
  1. OXALIPLATIN [Suspect]
     Indication: GASTRIC CANCER
     Dosage: UNIT DOSE: 85 MG/M2
     Route: 042
     Dates: start: 20080502, end: 20080502
  2. DOCETAXEL [Suspect]
     Dosage: UNIT DOSE: 50 MG/M2
     Route: 042
     Dates: start: 20080502, end: 20080502
  3. FLUOROURACIL [Suspect]
     Dosage: DOSE TEXT: 2400 MG/M2 AS A 46-HOUR CONTINUOUSLY INFUSION ON DAY 1UNIT DOSE: 2400 MG/M2
     Route: 042
     Dates: start: 20080502, end: 20080504
  4. ONDANSETRON [Concomitant]
     Route: 048
     Dates: start: 20080418

REACTIONS (1)
  - PERITONEAL ABSCESS [None]
